FAERS Safety Report 16012515 (Version 1)
Quarter: 2019Q1

REPORT INFORMATION
  Report Type: Spontaneous
  Country: FR (occurrence: FR)
  Receive Date: 20190227
  Receipt Date: 20190227
  Transmission Date: 20190418
  Serious: Yes (Other)
  Sender: FDA-Public Use
  Company Number: FR-SA-2019SA049835

PATIENT
  Age: 32 Year
  Sex: Male

DRUGS (3)
  1. CAPRELSA [Suspect]
     Active Substance: VANDETANIB
     Dosage: 6 DF (CAPSULES)
  2. CAPRELSA [Suspect]
     Active Substance: VANDETANIB
     Dosage: UNK
     Dates: start: 2015
  3. RIFAMPICIN [Suspect]
     Active Substance: RIFAMPIN

REACTIONS (3)
  - Tuberculosis [Unknown]
  - Drug interaction [Unknown]
  - Off label use [Unknown]
